FAERS Safety Report 15427106 (Version 17)
Quarter: 2020Q1

REPORT INFORMATION
  Report Type: Spontaneous
  Country: US (occurrence: US)
  Receive Date: 20180925
  Receipt Date: 20200331
  Transmission Date: 20200409
  Serious: No
  Sender: FDA-Public Use
  Company Number: US-ACTELION-A-US2018-179076

PATIENT
  Age: 57 Year
  Sex: Female
  Weight: 64.85 kg

DRUGS (14)
  1. VELETRI [Suspect]
     Active Substance: EPOPROSTENOL
     Indication: PULMONARY ARTERIAL HYPERTENSION
     Dosage: 28 NG/KG, PER MIN
     Route: 042
  2. VELETRI [Suspect]
     Active Substance: EPOPROSTENOL
     Dosage: 2 NG/KG, PER MIN
     Route: 042
  3. VELETRI [Suspect]
     Active Substance: EPOPROSTENOL
     Dosage: 14 NG/KG, PER MIN
     Route: 042
  4. VELETRI [Suspect]
     Active Substance: EPOPROSTENOL
     Dosage: 16 NG/KG, PER MIN
     Route: 042
  5. VELETRI [Suspect]
     Active Substance: EPOPROSTENOL
     Dosage: 24 NG/KG, PER MIN
     Route: 042
  6. VELETRI [Suspect]
     Active Substance: EPOPROSTENOL
     Dosage: 26 NG/KG, PER MIN
     Route: 042
  7. LETAIRIS [Concomitant]
     Active Substance: AMBRISENTAN
     Dosage: 10 MG, UNK
  8. ADCIRCA [Concomitant]
     Active Substance: TADALAFIL
     Dosage: 40 MG, UNK
  9. VELETRI [Suspect]
     Active Substance: EPOPROSTENOL
     Dosage: 3 NG/KG, PER MIN
     Route: 042
     Dates: start: 20180912
  10. VELETRI [Suspect]
     Active Substance: EPOPROSTENOL
     Dosage: 18 NG/KG, UNK
     Route: 042
  11. AMBRISENTAN [Concomitant]
     Active Substance: AMBRISENTAN
  12. VELETRI [Suspect]
     Active Substance: EPOPROSTENOL
     Dosage: 25 NG/KG, PER MIN
     Route: 042
  13. VELETRI [Suspect]
     Active Substance: EPOPROSTENOL
     Dosage: 8 NG/KG, PER MIN
     Route: 042
  14. VELETRI [Suspect]
     Active Substance: EPOPROSTENOL
     Dosage: 19 NG/KG, PER MIN
     Route: 042

REACTIONS (43)
  - Headache [Unknown]
  - Malaise [Unknown]
  - Feeling hot [Unknown]
  - Pain in extremity [Unknown]
  - Catheter site pruritus [Unknown]
  - Catheter site irritation [Not Recovered/Not Resolved]
  - Anaemia [Not Recovered/Not Resolved]
  - Device issue [Unknown]
  - Myalgia [Unknown]
  - Device dislocation [Unknown]
  - Chest discomfort [Unknown]
  - Rash papular [Unknown]
  - Vomiting [Recovering/Resolving]
  - Pain in jaw [Unknown]
  - Catheter placement [Unknown]
  - Syncope [Unknown]
  - Catheter site haemorrhage [Unknown]
  - Insomnia [Unknown]
  - Catheter site erythema [Not Recovered/Not Resolved]
  - Cardiomegaly [Unknown]
  - Arthritis [Unknown]
  - Throat irritation [Recovering/Resolving]
  - Epistaxis [Unknown]
  - Dermatitis contact [Unknown]
  - Presyncope [Unknown]
  - Back pain [Unknown]
  - Haemorrhage [Unknown]
  - Sinus pain [Unknown]
  - Nasal congestion [Unknown]
  - Paranasal sinus discomfort [Unknown]
  - Migraine [Unknown]
  - Wound [Unknown]
  - Pain [Unknown]
  - Sinusitis [Unknown]
  - Dizziness [Recovered/Resolved]
  - Oral pain [Unknown]
  - Abdominal pain [Unknown]
  - Catheter site rash [Unknown]
  - Pruritus [Unknown]
  - Diarrhoea [Unknown]
  - Nausea [Unknown]
  - Arthralgia [Unknown]
  - Skin discolouration [Unknown]

NARRATIVE: CASE EVENT DATE: 20181023
